FAERS Safety Report 5057172-8 (Version None)
Quarter: 2006Q3

REPORT INFORMATION
  Report Type: 
  Country: None (occurrence: None)
  Receive Date: 20060721
  Receipt Date: 20050218
  Transmission Date: 20061208
  Serious: No
  Sender: FDA-Public Use
  Company Number: US-GLAXOSMITHKLINE-A0546321A

PATIENT
  Age: 44 Year
  Sex: Female

DRUGS (5)
  1. AVANDIA [Suspect]
     Dosage: 8MG PER DAY
     Route: 048
     Dates: start: 20020101
  2. AVANDAMET [Suspect]
     Dosage: 1TAB TWICE PER DAY
     Route: 048
     Dates: start: 20051101
  3. GLUCOPHAGE XR [Concomitant]
  4. AMARYL [Concomitant]
  5. VITAMIN E [Concomitant]

REACTIONS (9)
  - BLOOD GLUCOSE FLUCTUATION [None]
  - DIARRHOEA [None]
  - DRUG INEFFECTIVE [None]
  - FLATULENCE [None]
  - ILL-DEFINED DISORDER [None]
  - JOINT ANKYLOSIS [None]
  - RENAL PAIN [None]
  - VIRAL INFECTION [None]
  - WEIGHT INCREASED [None]
